FAERS Safety Report 13111711 (Version 3)
Quarter: 2017Q2

REPORT INFORMATION
  Report Type: Spontaneous
  Country: US (occurrence: US)
  Receive Date: 20170113
  Receipt Date: 20170410
  Transmission Date: 20170830
  Serious: Yes (Death, Life-Threatening, Hospitalization, Other)
  Sender: FDA-Public Use
  Company Number: US-009507513-1701USA003807

PATIENT
  Age: 82 Year
  Sex: Male
  Weight: 68.48 kg

DRUGS (19)
  1. ACTOS [Concomitant]
     Active Substance: PIOGLITAZONE HYDROCHLORIDE
  2. ZOCOR [Concomitant]
     Active Substance: SIMVASTATIN
  3. BISACODYL. [Concomitant]
     Active Substance: BISACODYL
  4. CHROMIUM PICOLINATE [Concomitant]
     Active Substance: CHROMIUM PICOLINATE
  5. VICODIN [Concomitant]
     Active Substance: ACETAMINOPHEN\HYDROCODONE BITARTRATE
  6. ZINC (UNSPECIFIED) [Suspect]
     Active Substance: ZINC
  7. TERAZOSIN [Concomitant]
     Active Substance: TERAZOSIN\TERAZOSIN HYDROCHLORIDE
  8. ACARBOSE. [Concomitant]
     Active Substance: ACARBOSE
  9. CALCIUM (UNSPECIFIED) (+) VITAMIN D (UNSPECIFIED) [Concomitant]
     Active Substance: CALCIUM CARBONATE\VITAMIN D
  10. GLYBURIDE. [Concomitant]
     Active Substance: GLYBURIDE
  11. LOSARTAN POTASSIUM TABLETS [Concomitant]
     Active Substance: LOSARTAN POTASSIUM
  12. KEYTRUDA [Suspect]
     Active Substance: PEMBROLIZUMAB
     Indication: METASTATIC MALIGNANT MELANOMA
     Dosage: 140 MG, ONCE
     Route: 042
     Dates: start: 20161107, end: 20161107
  13. OXYCODONE [Concomitant]
     Active Substance: OXYCODONE
  14. TOPRAL [Concomitant]
     Active Substance: SULTOPRIDE HYDROCHLORIDE
  15. VITAMIN B (UNSPECIFIED) [Concomitant]
  16. ASPIRIN. [Concomitant]
     Active Substance: ASPIRIN
  17. ZANTAC [Concomitant]
     Active Substance: RANITIDINE HYDROCHLORIDE
  18. METFORMIN [Concomitant]
     Active Substance: METFORMIN HYDROCHLORIDE
  19. OMEPRAZOLE. [Concomitant]
     Active Substance: OMEPRAZOLE

REACTIONS (6)
  - Hepatic failure [Fatal]
  - Hepatitis [Fatal]
  - Lipase increased [None]
  - Cholelithiasis [None]
  - Renal failure [Fatal]
  - Jaundice [Fatal]

NARRATIVE: CASE EVENT DATE: 2016
